FAERS Safety Report 9069065 (Version 1)
Quarter: 2013Q1

REPORT INFORMATION
  Report Type: Spontaneous
  Country: US (occurrence: None)
  Receive Date: 20130213
  Receipt Date: 20130213
  Transmission Date: 20140127
  Serious: Yes (Hospitalization)
  Sender: FDA-Public Use
  Company Number: None

PATIENT
  Sex: Female
  Weight: 71 kg

DRUGS (1)
  1. CARBOPLATIN [Suspect]
     Dates: start: 20130207, end: 20130208

REACTIONS (5)
  - Retching [None]
  - Blood pressure decreased [None]
  - Urinary tract infection [None]
  - Sepsis [None]
  - Oxygen saturation decreased [None]
